FAERS Safety Report 17095266 (Version 1)
Quarter: 2019Q4

REPORT INFORMATION
  Report Type: Spontaneous
  Country: IT (occurrence: IT)
  Receive Date: 20191130
  Receipt Date: 20191130
  Transmission Date: 20200122
  Serious: Yes (Hospitalization, Other)
  Sender: FDA-Public Use
  Company Number: IT-BRISTOL-MYERS SQUIBB COMPANY-BMS-2019-112075

PATIENT
  Age: 79 Year
  Sex: Female
  Weight: 43 kg

DRUGS (2)
  1. OPDIVO [Suspect]
     Active Substance: NIVOLUMAB
     Indication: LUNG ADENOCARCINOMA
     Dosage: 480 MILLIGRAM
     Route: 042
     Dates: start: 20190712, end: 20190826
  2. LODOZ [Concomitant]
     Active Substance: BISOPROLOL FUMARATE\HYDROCHLOROTHIAZIDE
     Indication: PRODUCT USED FOR UNKNOWN INDICATION
     Dosage: 1 DOSAGE FORM
     Route: 048

REACTIONS (1)
  - Atrial flutter [Recovered/Resolved]

NARRATIVE: CASE EVENT DATE: 20190907
